FAERS Safety Report 9498488 (Version 10)
Quarter: 2017Q1

REPORT INFORMATION
  Report Type: Spontaneous
  Country: US (occurrence: US)
  Receive Date: 20130904
  Receipt Date: 20170303
  Transmission Date: 20170429
  Serious: Yes (Hospitalization, Other)
  Sender: FDA-Public Use
  Company Number: US-GLAXOSMITHKLINE-A1026670A

PATIENT
  Age: 51 Year
  Sex: Female

DRUGS (10)
  1. FLOLAN [Suspect]
     Active Substance: EPOPROSTENOL SODIUM
     Dosage: UNK
     Dates: start: 20130218
  2. FLOLAN [Suspect]
     Active Substance: EPOPROSTENOL SODIUM
     Dosage: UNK
     Dates: start: 20130218
  3. FLOLAN [Suspect]
     Active Substance: EPOPROSTENOL SODIUM
     Dosage: 32.24 NG/KG/MIN CONTINUOUS; CONCENTRATION: 45,000 NG/ML; PUMP RATE: 65 ML/DAY: VIAL STRENGTH: 1.5MG
     Dates: start: 20130308
  4. FLOLAN [Suspect]
     Active Substance: EPOPROSTENOL SODIUM
     Dosage: 32.24 NG/KG/MIN CONTINUOUSLY
     Route: 042
  5. FLOLAN [Suspect]
     Active Substance: EPOPROSTENOL SODIUM
     Dosage: 32.4 NG/KG/MIN (45,000 NG/ML, PUMP RATE 65 ML/DAY, VIAL STRENGTH 1.5 MG/ML), CO
     Route: 042
     Dates: start: 20130307
  6. FLOLAN [Suspect]
     Active Substance: EPOPROSTENOL SODIUM
     Dosage: 31 DF, CO
     Route: 042
  7. FLOLAN [Suspect]
     Active Substance: EPOPROSTENOL SODIUM
     Indication: PULMONARY ARTERIAL HYPERTENSION
     Dosage: (CONCENTRATION 60,000 NG/ML; 1.5 MG VIAL STRENGTH, 40.57 NG/KG/MIN CONTINUOUSLY ).DOSE: 44.97 N[...]
     Route: 042
     Dates: start: 20130207
  8. TRACLEER [Concomitant]
     Active Substance: BOSENTAN
  9. FLOLAN [Suspect]
     Active Substance: EPOPROSTENOL SODIUM
     Indication: PULMONARY ARTERIAL HYPERTENSION
  10. FLOLAN [Suspect]
     Active Substance: EPOPROSTENOL SODIUM
     Dosage: 31 NG/KG/MIN, CO
     Route: 042
     Dates: start: 20130307

REACTIONS (19)
  - Therapy cessation [Unknown]
  - Nausea [Unknown]
  - Catheter site pruritus [Unknown]
  - Hospitalisation [Unknown]
  - Skin discolouration [Unknown]
  - Swelling [Recovering/Resolving]
  - Ascites [Unknown]
  - Dry skin [Unknown]
  - Pruritus [Unknown]
  - Hypokalaemia [Unknown]
  - Diarrhoea [Unknown]
  - Cough [Unknown]
  - Cardiac failure [Unknown]
  - Pain [Unknown]
  - Headache [Unknown]
  - Device related infection [Unknown]
  - Hypotension [Unknown]
  - Blood creatinine increased [Unknown]
  - Rash pustular [Not Recovered/Not Resolved]

NARRATIVE: CASE EVENT DATE: 20130828
